FAERS Safety Report 8147879-8 (Version None)
Quarter: 2012Q1

REPORT INFORMATION
  Report Type: 
  Country: None (occurrence: None)
  Receive Date: 20120218
  Receipt Date: 20110324
  Transmission Date: 20120608
  Serious: No
  Sender: FDA-Public Use
  Company Number: US-ALLERGAN-1104225US

PATIENT
  Age: 47 Year
  Sex: Female

DRUGS (1)
  1. BOTOX COSMETIC [Suspect]
     Indication: SKIN WRINKLING
     Dosage: 35 UNITS, SINGLE
     Dates: start: 20110315, end: 20110315

REACTIONS (4)
  - DIZZINESS [None]
  - HEAD DISCOMFORT [None]
  - NAUSEA [None]
  - EYELID PTOSIS [None]
